FAERS Safety Report 8926210 (Version 3)
Quarter: 2013Q2

REPORT INFORMATION
  Report Type: Spontaneous
  Country: US (occurrence: US)
  Receive Date: 20121126
  Receipt Date: 20130621
  Transmission Date: 20140414
  Serious: Yes (Hospitalization, Disabling)
  Sender: FDA-Public Use
  Company Number: US-BAYER-2012-122428

PATIENT
  Age: 31 Year
  Sex: Female
  Weight: 74.83 kg

DRUGS (3)
  1. YAZ [Suspect]
     Dosage: UNK
     Dates: start: 20080811, end: 20080911
  2. TAMOXIFEN [Concomitant]
  3. OXYCODONE [Concomitant]

REACTIONS (26)
  - Pulmonary embolism [Recovered/Resolved]
  - Pneumothorax [Recovered/Resolved]
  - Injury [Recovered/Resolved]
  - Pain [Recovered/Resolved]
  - Anxiety [None]
  - Anhedonia [None]
  - Grief reaction [None]
  - General physical health deterioration [Recovered/Resolved]
  - Ventricular hypokinesia [None]
  - Angina pectoris [None]
  - Dyspnoea [Recovered/Resolved]
  - Flushing [Recovered/Resolved]
  - Weight increased [None]
  - Postpartum haemorrhage [None]
  - Hypoaesthesia [None]
  - Gait disturbance [None]
  - Mental disorder [None]
  - Malnutrition [None]
  - Asthenia [None]
  - Malaise [None]
  - Contusion [None]
  - Activities of daily living impaired [None]
  - Dental caries [None]
  - Constipation [None]
  - Mental disorder [None]
  - Off label use [None]
